FAERS Safety Report 17797741 (Version 1)
Quarter: 2020Q2

REPORT INFORMATION
  Report Type: Spontaneous
  Country: GB (occurrence: GB)
  Receive Date: 20200518
  Receipt Date: 20200518
  Transmission Date: 20200714
  Serious: Yes (Other)
  Sender: FDA-Public Use
  Company Number: GB-PIRAMAL ENTERPRISES LIMITED-2020-PEL-000203

PATIENT

DRUGS (5)
  1. PROPOFOL. [Suspect]
     Active Substance: PROPOFOL
     Indication: ANAESTHESIA
     Dosage: 1.5 MILLIGRAM/KILOGRAM
     Route: 065
  2. ROCURONIUM [Suspect]
     Active Substance: ROCURONIUM BROMIDE
     Indication: ANAESTHESIA
     Dosage: 1 MILLIGRAM/KILOGRAM
     Route: 065
  3. FENTANYL INJECTION [Suspect]
     Active Substance: FENTANYL
     Indication: ANAESTHESIA
     Dosage: 2 MICROGRAM/KILOGRAM
     Route: 065
  4. REMIFENTANIL [Suspect]
     Active Substance: REMIFENTANIL
     Indication: ANAESTHESIA
     Dosage: UNK
     Route: 065
  5. SEVOFLURANE. [Suspect]
     Active Substance: SEVOFLURANE
     Indication: ANAESTHESIA
     Dosage: UNK
     Route: 065

REACTIONS (5)
  - Hypotension [Unknown]
  - Condition aggravated [Unknown]
  - Hyperhidrosis [Unknown]
  - Cyanosis [Unknown]
  - Systolic hypertension [Unknown]
